FAERS Safety Report 10200250 (Version 1)
Quarter: 2014Q2

REPORT INFORMATION
  Report Type: Spontaneous
  Country: US (occurrence: US)
  Receive Date: 20140527
  Receipt Date: 20140527
  Transmission Date: 20141212
  Serious: Yes (Hospitalization)
  Sender: FDA-Public Use
  Company Number: US-SA-2013SA116890

PATIENT
  Age: 68 Year
  Sex: Male

DRUGS (6)
  1. CAMPATH [Suspect]
     Indication: APLASIA PURE RED CELL
     Dosage: EVERY 4 MONTHS (Q4M)
     Route: 042
     Dates: start: 20130221, end: 20130623
  2. CAMPATH [Suspect]
     Indication: MYELODYSPLASTIC SYNDROME
     Dosage: EVERY 4 MONTHS (Q4M)
     Route: 042
     Dates: start: 20130221, end: 20130623
  3. NEUPOGEN [Concomitant]
     Route: 042
  4. BLOOD, WHOLE [Concomitant]
     Dosage: DOSE:2 UNIT(S)
     Route: 065
  5. PLATELET [Concomitant]
     Dosage: DOSE:10 UNIT(S)
     Route: 065
  6. AUGMENTIN [Concomitant]
     Route: 065

REACTIONS (1)
  - Pneumonia [Recovered/Resolved]
